FAERS Safety Report 10180347 (Version 1)
Quarter: 2014Q2

REPORT INFORMATION
  Report Type: Spontaneous
  Country: US (occurrence: US)
  Receive Date: 20140519
  Receipt Date: 20140519
  Transmission Date: 20141212
  Serious: No
  Sender: FDA-Public Use
  Company Number: US-AMGEN INC.-USASP2013079002

PATIENT
  Age: 91 Year
  Sex: Female

DRUGS (10)
  1. PROLIA [Suspect]
     Indication: PROPHYLAXIS
     Dosage: UNK
     Route: 065
  2. WARFARIN [Concomitant]
     Dosage: UNK
     Dates: start: 2010
  3. LOSARTAN [Concomitant]
  4. METOPROLOL [Concomitant]
  5. OMEPRAZOLE [Concomitant]
  6. CITRACAL                           /00751520/ [Concomitant]
  7. VITAMIN D                          /00107901/ [Concomitant]
  8. LUTEIN                             /01638501/ [Concomitant]
  9. HYDROCODONE [Concomitant]
     Dosage: UNK, AS NEEDED
  10. FISH OIL [Concomitant]

REACTIONS (1)
  - Gingival bleeding [Unknown]
